FAERS Safety Report 18990994 (Version 1)
Quarter: 2021Q1

REPORT INFORMATION
  Report Type: Spontaneous
  Country: UA (occurrence: UA)
  Receive Date: 20210310
  Receipt Date: 20210310
  Transmission Date: 20210420
  Serious: Yes (Other)
  Sender: FDA-Public Use
  Company Number: UA-BAUSCH-BL-2021-007829

PATIENT
  Age: 66 Year
  Sex: Female

DRUGS (2)
  1. ALFA NORMIX [Suspect]
     Active Substance: RIFAXIMIN
     Indication: OVERGROWTH BACTERIAL
     Dosage: 200MG; 2 TABLETS 3 TIMES A DAY
     Route: 048
  2. ALFA NORMIX [Suspect]
     Active Substance: RIFAXIMIN
     Indication: IRRITABLE BOWEL SYNDROME

REACTIONS (1)
  - Abdominal distension [Recovered/Resolved]
